FAERS Safety Report 12251879 (Version 1)
Quarter: 2016Q2

REPORT INFORMATION
  Report Type: Spontaneous
  Country: TR (occurrence: TR)
  Receive Date: 20160411
  Receipt Date: 20160411
  Transmission Date: 20160815
  Serious: Yes (Other)
  Sender: FDA-Public Use
  Company Number: TR-CIPLA LTD.-2016TR03522

PATIENT

DRUGS (5)
  1. FLUOROURACIL. [Suspect]
     Active Substance: FLUOROURACIL
     Indication: ADENOCARCINOMA GASTRIC
     Dosage: 200 MG/M2 ON DAY 1 TO 21 FOR 21 DAYS
     Route: 065
     Dates: start: 201110
  2. EPIRUBICIN [Suspect]
     Active Substance: EPIRUBICIN
     Indication: ADENOCARCINOMA GASTRIC
     Dosage: 50 MG/M2 ON DAY 1 FOR 21 DAYS
     Route: 065
     Dates: start: 201110
  3. CISPLATIN. [Suspect]
     Active Substance: CISPLATIN
     Indication: ADENOCARCINOMA GASTRIC
     Dosage: 60 MG/M2 ON DAY 1 FOR 21 DAYS
     Route: 065
     Dates: start: 201110
  4. CAPECITABINE. [Suspect]
     Active Substance: CAPECITABINE
     Indication: ADENOCARCINOMA GASTRIC
     Dosage: 2 ? 1000 MG/M2 ON DAY 1 TO 14 DAYS FOR 21 DAYS
     Route: 065
     Dates: start: 201305
  5. CISPLATIN. [Suspect]
     Active Substance: CISPLATIN
     Dosage: 80 MG/M2 ON DAY 1 FOR 21 DAYS
     Route: 065
     Dates: start: 201305

REACTIONS (3)
  - Disease progression [Unknown]
  - Metastases to the mediastinum [Recovered/Resolved]
  - Metastases to lymph nodes [Recovered/Resolved]

NARRATIVE: CASE EVENT DATE: 201305
